FAERS Safety Report 13638118 (Version 1)
Quarter: 2017Q2

REPORT INFORMATION
  Report Type: Report from Study
  Country: CA (occurrence: CA)
  Receive Date: 20170609
  Receipt Date: 20170609
  Transmission Date: 20170830
  Serious: No
  Sender: FDA-Public Use
  Company Number: CA-BIOGEN-2017BI00393475

PATIENT
  Age: 50 Year
  Sex: Female

DRUGS (1)
  1. FAMPYRA [Suspect]
     Active Substance: DALFAMPRIDINE
     Indication: GAIT DISTURBANCE
     Dosage: DOSING AS PER MD ORDERS
     Route: 048
     Dates: start: 20161021

REACTIONS (2)
  - Prescribed underdose [Not Recovered/Not Resolved]
  - Lipoma [Unknown]

NARRATIVE: CASE EVENT DATE: 201704
